FAERS Safety Report 23040845 (Version 1)
Quarter: 2023Q4

REPORT INFORMATION
  Report Type: Spontaneous
  Country: US (occurrence: US)
  Receive Date: 20231006
  Receipt Date: 20231006
  Transmission Date: 20240110
  Serious: No
  Sender: FDA-Public Use
  Company Number: US-JUBILANT CADISTA PHARMACEUTICALS-2022JUB00245

PATIENT
  Sex: Male
  Weight: 65.769 kg

DRUGS (11)
  1. PREDNISONE [Suspect]
     Active Substance: PREDNISONE
     Indication: Rheumatoid arthritis
     Dosage: 1 TABLETS, 1X/DAY
     Dates: start: 20211101, end: 20211117
  2. PREDNISONE [Suspect]
     Active Substance: PREDNISONE
     Dosage: 0.5 TABLETS, 1X/DAY
     Dates: start: 20211118, end: 20211201
  3. PREDNISONE [Suspect]
     Active Substance: PREDNISONE
     Dosage: 1 TABLETS,1X/DAY
     Route: 048
     Dates: start: 20220204, end: 20220213
  4. PREDNISONE [Suspect]
     Active Substance: PREDNISONE
     Dosage: 0.5 TABLETS, 1X/DAY
     Route: 048
     Dates: start: 20220214, end: 20220223
  5. HUMIRA [Suspect]
     Active Substance: ADALIMUMAB
     Indication: Rheumatoid arthritis
     Dosage: 40 MG, 1X/MONTH
     Dates: start: 2007
  6. HUMIRA [Suspect]
     Active Substance: ADALIMUMAB
     Indication: Rheumatoid arthritis
     Dosage: 40 MG, ONCE
     Dates: start: 20220103, end: 20220103
  7. HUMIRA [Suspect]
     Active Substance: ADALIMUMAB
     Indication: Inflammation
     Dosage: 40 MG, ONCE
     Dates: start: 20220117, end: 20220117
  8. HUMIRA [Suspect]
     Active Substance: ADALIMUMAB
     Dosage: 40 MG, ONCE
     Dates: start: 20220131, end: 20220131
  9. VITAMIN C [Concomitant]
     Active Substance: ASCORBIC ACID
  10. VITAMIN D [Concomitant]
     Active Substance: VITAMIN D NOS
  11. VITAMINS [Concomitant]
     Active Substance: VITAMINS

REACTIONS (12)
  - Gingival bleeding [Recovered/Resolved]
  - Gingival recession [Recovering/Resolving]
  - Tooth infection [Recovered/Resolved]
  - Root canal infection [Recovered/Resolved]
  - Oral hyperaesthesia [Recovered/Resolved]
  - Hyperaesthesia teeth [Not Recovered/Not Resolved]
  - Heart rate decreased [Unknown]
  - Abdominal pain lower [Unknown]
  - Back pain [Unknown]
  - Blood potassium increased [Unknown]
  - Low density lipoprotein increased [Unknown]
  - Aspartate aminotransferase increased [Unknown]

NARRATIVE: CASE EVENT DATE: 20220101
